FAERS Safety Report 20129855 (Version 1)
Quarter: 2021Q4

REPORT INFORMATION
  Report Type: Spontaneous
  Country: US (occurrence: US)
  Receive Date: 20211130
  Receipt Date: 20211130
  Transmission Date: 20220303
  Serious: No
  Sender: FDA-Public Use
  Company Number: US-GALDERMA-US2021018472

PATIENT

DRUGS (1)
  1. DIFFERIN GEL [Suspect]
     Active Substance: ADAPALENE
     Indication: Skin wrinkling
     Dosage: 1 DOSAGE FORM, UNKNOWN
     Route: 061

REACTIONS (1)
  - Product use in unapproved indication [Recovered/Resolved]
